FAERS Safety Report 9600365 (Version 1)
Quarter: 2013Q4

REPORT INFORMATION
  Report Type: Spontaneous
  Country: US (occurrence: US)
  Receive Date: 20131004
  Receipt Date: 20131004
  Transmission Date: 20140711
  Serious: Yes (Hospitalization)
  Sender: FDA-Public Use
  Company Number: US-AMGEN-USASP2013034873

PATIENT
  Age: 52 Year
  Sex: Male

DRUGS (2)
  1. ENBREL [Suspect]
     Indication: RHEUMATOID ARTHRITIS
     Dosage: 25 MG, QWK
     Dates: start: 20030801
  2. METHOTREXATE [Concomitant]
     Dosage: UNK

REACTIONS (6)
  - Chest pain [Not Recovered/Not Resolved]
  - Barrett^s oesophagus [Not Recovered/Not Resolved]
  - Asthma [Not Recovered/Not Resolved]
  - Lung disorder [Not Recovered/Not Resolved]
  - Bronchitis [Recovered/Resolved]
  - Staphylococcal infection [Recovered/Resolved]
